FAERS Safety Report 8492192-2 (Version None)
Quarter: 2012Q3

REPORT INFORMATION
  Report Type: 
  Country: None (occurrence: None)
  Receive Date: 20120706
  Receipt Date: 20120702
  Transmission Date: 20120928
  Serious: Yes (Hospitalization)
  Sender: FDA-Public Use
  Company Number: US-BAYER-2012-065058

PATIENT
  Sex: Female

DRUGS (3)
  1. YASMIN [Suspect]
     Dosage: 1 DF, QD
     Route: 048
     Dates: start: 20090715
  2. DROSPIRENONE AND ETHINYL ESTRADIOL [Suspect]
     Dosage: 1 DF, QD
     Route: 048
     Dates: start: 20090715
  3. YAZ [Suspect]
     Dosage: 1 DF, QD
     Route: 048

REACTIONS (5)
  - INJURY [None]
  - CHOLELITHIASIS [None]
  - ANHEDONIA [None]
  - ANXIETY [None]
  - PAIN [None]
